FAERS Safety Report 21495814 (Version 3)
Quarter: 2022Q4

REPORT INFORMATION
  Report Type: Report from Study
  Country: BE (occurrence: BE)
  Receive Date: 20221022
  Receipt Date: 20221109
  Transmission Date: 20230113
  Serious: Yes (Hospitalization)
  Sender: FDA-Public Use
  Company Number: BE-ABBVIE-4170163

PATIENT
  Sex: Male

DRUGS (11)
  1. CARBIDOPA\LEVODOPA [Suspect]
     Active Substance: CARBIDOPA\LEVODOPA
     Indication: Parkinson^s disease
     Dosage: MD: 11.0 ML, CD: 5.0 ML/H, ED: 3.0 ML; REMAINS AT 16 HOURS
     Route: 050
     Dates: start: 20220722, end: 20221020
  2. CARBIDOPA\LEVODOPA [Suspect]
     Active Substance: CARBIDOPA\LEVODOPA
     Dosage: MD: 11.0 ML, CD: 5.0 ML/H, ED: 3.0 ML; REMAINS AT 16 HOURS
     Route: 050
     Dates: start: 20220719, end: 20220722
  3. CARBIDOPA\LEVODOPA [Suspect]
     Active Substance: CARBIDOPA\LEVODOPA
     Dosage: MD: 11.0 ML, CD: 4.5 ML/H, ED: 3.0 ML; REMAINS AT 16 HOURS
     Route: 050
     Dates: start: 20220718, end: 20220719
  4. CARBIDOPA\LEVODOPA [Suspect]
     Active Substance: CARBIDOPA\LEVODOPA
     Dosage: MD: 12.5 ML, CD: 4.9 ML/H, ED: 3.0 ML; REMAINS AT 16 HOURS
     Route: 050
     Dates: start: 20220207, end: 20220303
  5. CARBIDOPA\LEVODOPA [Suspect]
     Active Substance: CARBIDOPA\LEVODOPA
     Dosage: MD: 14.0 ML, CD: 5.0 ML/H, ED: 3.0 ML; REMAINS AT 16 HOURS
     Route: 050
     Dates: start: 20220303, end: 20220718
  6. CARBIDOPA\LEVODOPA [Suspect]
     Active Substance: CARBIDOPA\LEVODOPA
     Dosage: MD: 11.0 ML, CD: 5.2 ML/H (AM), CD: 3.0 ML/HR (PM), ED: 3.0 ML; REMAINS AT 16 HOURS
     Route: 050
     Dates: start: 20221020, end: 20221031
  7. CARBIDOPA\LEVODOPA [Suspect]
     Active Substance: CARBIDOPA\LEVODOPA
     Dosage: MD: 9.0 ML, CD: 4.8 ML/H (AM), CD: 5.4 ML/HR (PM), ED: 3.0 ML; REMAINS AT 16 HOURS
     Route: 050
     Dates: start: 20221031
  8. Prolopa dispers [Concomitant]
     Indication: Product used for unknown indication
  9. Prolopa dispers [Concomitant]
     Indication: Product used for unknown indication
  10. BENSERAZIDE\LEVODOPA [Concomitant]
     Active Substance: BENSERAZIDE\LEVODOPA
     Indication: Product used for unknown indication
     Route: 065
  11. VITAMIN B [Concomitant]
     Active Substance: VITAMIN B
     Indication: Product used for unknown indication

REACTIONS (11)
  - Decreased appetite [Unknown]
  - Gastroenteritis [Unknown]
  - Gait disturbance [Unknown]
  - Muscle rigidity [Unknown]
  - Weight decreased [Unknown]
  - Dysphagia [Unknown]
  - Bradykinesia [Unknown]
  - Tremor [Unknown]
  - Mobility decreased [Unknown]
  - Gastrooesophageal reflux disease [Unknown]
  - Polyneuropathy [Not Recovered/Not Resolved]

NARRATIVE: CASE EVENT DATE: 20220101
